FAERS Safety Report 5166966-X (Version None)
Quarter: 2006Q4

REPORT INFORMATION
  Report Type: 
  Country: None (occurrence: None)
  Receive Date: 20061207
  Receipt Date: 20060515
  Transmission Date: 20070319
  Serious: Yes (Other)
  Sender: FDA-Public Use
  Company Number: 2006AP02562

PATIENT
  Age: 22660 Day
  Sex: Female
  Weight: 45 kg

DRUGS (8)
  1. IRESSA [Suspect]
     Indication: NON-SMALL CELL LUNG CANCER
     Route: 048
     Dates: start: 20040701
  2. AMLODIPINE BESYLATE [Concomitant]
     Indication: HYPERTENSION
     Route: 048
     Dates: start: 19940101
  3. RENIVACE [Concomitant]
     Indication: HYPERTENSION
     Route: 048
     Dates: start: 19940101
  4. BEZATOL SR [Concomitant]
     Indication: HYPERLIPIDAEMIA
     Route: 048
     Dates: start: 19940101
  5. SELBEX [Concomitant]
     Indication: PROPHYLAXIS AGAINST GASTROINTESTINAL ULCER
     Route: 048
     Dates: start: 19940101
  6. TAGAMET [Concomitant]
     Indication: PROPHYLAXIS AGAINST GASTROINTESTINAL ULCER
     Route: 048
     Dates: start: 19940101
  7. CEROCRAL [Concomitant]
     Indication: DIZZINESS
     Route: 048
     Dates: start: 19940101
  8. MUCODYNE [Concomitant]
     Route: 048
     Dates: start: 20040401

REACTIONS (1)
  - MANIA [None]
